FAERS Safety Report 5372850-9 (Version None)
Quarter: 2007Q2

REPORT INFORMATION
  Report Type: 
  Country: None (occurrence: None)
  Receive Date: 20070531
  Receipt Date: 20070321
  Transmission Date: 20071010
  Serious: Yes (Life-Threatening)
  Sender: FDA-Public Use
  Company Number: WSDF_00629

PATIENT
  Age: 8 Year
  Sex: Female
  Weight: 34.3 kg

DRUGS (3)
  1. WINRHO [Suspect]
     Indication: IDIOPATHIC THROMBOCYTOPENIC PURPURA
     Dosage: 2600 MCG ONCE IV
     Route: 042
     Dates: start: 20070222, end: 20070222
  2. WINRHO [Suspect]
     Indication: IDIOPATHIC THROMBOCYTOPENIC PURPURA
     Dates: start: 20070222, end: 20070222
  3. HYDROCORTISONE [Concomitant]

REACTIONS (2)
  - DYSPNOEA [None]
  - FLUSHING [None]
